FAERS Safety Report 7438998-X (Version None)
Quarter: 2011Q2

REPORT INFORMATION
  Report Type: 
  Country: None (occurrence: None)
  Receive Date: 20110427
  Receipt Date: 20110418
  Transmission Date: 20111010
  Serious: Yes (Hospitalization)
  Sender: FDA-Public Use
  Company Number: US-US-EMD SERONO, INC.-7054979

PATIENT
  Sex: Female
  Weight: 75 kg

DRUGS (2)
  1. REBIF [Suspect]
     Indication: MULTIPLE SCLEROSIS
     Route: 058
     Dates: start: 20070418
  2. ZOLOFT [Concomitant]
     Indication: DEPRESSION
     Dates: start: 20030101

REACTIONS (8)
  - URINARY TRACT INFECTION [None]
  - SINUSITIS [None]
  - CHILLS [None]
  - DRUG INTERACTION [None]
  - INJECTION SITE HAEMATOMA [None]
  - PYREXIA [None]
  - COUGH [None]
  - INJECTION SITE ERYTHEMA [None]
